FAERS Safety Report 8973129 (Version 1)
Quarter: 2012Q4

REPORT INFORMATION
  Report Type: 
  Country: US (occurrence: US)
  Receive Date: 20121219
  Receipt Date: 20121219
  Transmission Date: 20130627
  Serious: Yes (Other)
  Sender: FDA-Public Use
  Company Number: US-AMGEN-USASP2012081290

PATIENT
  Age: 77 Year
  Sex: Female

DRUGS (1)
  1. ENBREL [Suspect]
     Indication: RHEUMATOID ARTHRITIS
     Dosage: 25 mg, biweekly
     Dates: start: 20051001

REACTIONS (6)
  - Aortic aneurysm [Not Recovered/Not Resolved]
  - Femoral artery aneurysm [Not Recovered/Not Resolved]
  - Renal failure [Not Recovered/Not Resolved]
  - Back pain [Not Recovered/Not Resolved]
  - Scoliosis [Not Recovered/Not Resolved]
  - Hearing impaired [Not Recovered/Not Resolved]
